FAERS Safety Report 4697324-X (Version None)
Quarter: 2005Q2

REPORT INFORMATION
  Report Type: 
  Country: None (occurrence: None)
  Receive Date: 20050620
  Receipt Date: 20050615
  Transmission Date: 20051028
  Serious: Yes (Hospitalization, Disabling)
  Sender: FDA-Public Use
  Company Number: USA-2005-0020433

PATIENT
  Age: 1 Year
  Sex: Male

DRUGS (3)
  1. CEFDITOREN PIVOXIL (SIMILAR TO NDA 21-222) (CEFDITOREN PIVOXIL) [Suspect]
     Indication: OTITIS MEDIA
     Dosage: 120 MG, DAILY, ORAL
     Route: 048
     Dates: start: 20041201, end: 20050504
  2. KETOTIFEN (KETOTIFEN) [Concomitant]
  3. BIO THREE (BACTERIA NOS) [Concomitant]

REACTIONS (10)
  - ACIDOSIS [None]
  - CARNITINE DECREASED [None]
  - CARNITINE DEFICIENCY [None]
  - CONVULSION [None]
  - DEPRESSED LEVEL OF CONSCIOUSNESS [None]
  - HYPOGLYCAEMIA [None]
  - METABOLIC ACIDOSIS [None]
  - ORAL INTAKE REDUCED [None]
  - PALLOR [None]
  - VOMITING [None]
